FAERS Safety Report 8407416-7 (Version None)
Quarter: 2012Q2

REPORT INFORMATION
  Report Type: 
  Country: None (occurrence: None)
  Receive Date: 20120529
  Receipt Date: 20120514
  Transmission Date: 20120825
  Serious: Yes (Hospitalization)
  Sender: FDA-Public Use
  Company Number: FR-2012-2050

PATIENT
  Age: 59 Year
  Sex: Male

DRUGS (8)
  1. PANTOPRAZOLE SODIUM [Concomitant]
  2. CODEINE PHOSPHATE [Concomitant]
  3. FENOFIBRATE [Concomitant]
  4. SYMBICORT [Concomitant]
  5. LYRICA [Concomitant]
  6. NAVELBINE [Suspect]
     Indication: CHEMOTHERAPY
     Dates: end: 20120329
  7. CLONAZEPAM [Concomitant]
  8. CISPLATIN [Concomitant]

REACTIONS (6)
  - RALES [None]
  - AGRANULOCYTOSIS [None]
  - CHILLS [None]
  - CHEST X-RAY ABNORMAL [None]
  - LUNG DISORDER [None]
  - PYREXIA [None]
